FAERS Safety Report 21063957 (Version 1)
Quarter: 2022Q3

REPORT INFORMATION
  Report Type: Report from Study
  Country: CN (occurrence: CN)
  Receive Date: 20220711
  Receipt Date: 20220711
  Transmission Date: 20221027
  Serious: Yes (Life-Threatening)
  Sender: FDA-Public Use
  Company Number: CN-ELI_LILLY_AND_COMPANY-CN202207001994

PATIENT
  Age: 73 Year
  Sex: Male

DRUGS (21)
  1. PEMETREXED [Suspect]
     Active Substance: PEMETREXED
     Indication: Non-small cell lung cancer
     Dosage: 500 MG/M2, ONCE EVRY 3 WEEKS
     Route: 042
     Dates: start: 20211214, end: 20211214
  2. PEMETREXED [Suspect]
     Active Substance: PEMETREXED
     Dosage: 500 MG/M2, ONCE EVRY 3 WEEKS
     Route: 042
     Dates: start: 20220105, end: 20220105
  3. PEMETREXED [Suspect]
     Active Substance: PEMETREXED
     Dosage: 500 MG/M2, ONCE EVRY 3 WEEKS
     Route: 042
     Dates: start: 20220126, end: 20220126
  4. PEMETREXED [Suspect]
     Active Substance: PEMETREXED
     Dosage: 500 MG/M2, ONCE EVRY 3 WEEKS
     Route: 042
     Dates: start: 20220217, end: 20220217
  5. PEMETREXED [Suspect]
     Active Substance: PEMETREXED
     Dosage: 500 MG/M2, ONCE EVRY 4 WEEKS
     Route: 042
     Dates: start: 20220310, end: 20220310
  6. PEMETREXED [Suspect]
     Active Substance: PEMETREXED
     Dosage: 500 MG/M2, ONCE EVRY 4 WEEKS
     Route: 042
     Dates: start: 20220408, end: 20220408
  7. CARBOPLATIN [Concomitant]
     Active Substance: CARBOPLATIN
     Indication: Non-small cell lung cancer
     Dosage: 438 AUC, EVERY 3 WEEKS
     Route: 042
     Dates: start: 20211214, end: 20211214
  8. CARBOPLATIN [Concomitant]
     Active Substance: CARBOPLATIN
     Dosage: 438 AUC, EVERY 3 WEEKS
     Route: 042
     Dates: start: 20220105, end: 20220105
  9. CARBOPLATIN [Concomitant]
     Active Substance: CARBOPLATIN
     Dosage: 438 AUC, EVERY 3 WEEKS
     Route: 042
     Dates: start: 20220126, end: 20220126
  10. CARBOPLATIN [Concomitant]
     Active Substance: CARBOPLATIN
     Dosage: 438 AUC, EVERY 3 WEEKS
     Route: 042
     Dates: start: 20220217, end: 20220217
  11. TREMELIMUMAB [Concomitant]
     Active Substance: TREMELIMUMAB
     Indication: Non-small cell lung cancer
     Dosage: 75 MG, EVERY 3 WEEKS
     Route: 042
     Dates: start: 20211214, end: 20211214
  12. TREMELIMUMAB [Concomitant]
     Active Substance: TREMELIMUMAB
     Dosage: 75 MG, EVERY 3 WEEKS
     Route: 042
     Dates: start: 20220105, end: 20220105
  13. TREMELIMUMAB [Concomitant]
     Active Substance: TREMELIMUMAB
     Dosage: 75 MG, EVERY 3 WEEKS
     Route: 042
     Dates: start: 20220126, end: 20220126
  14. TREMELIMUMAB [Concomitant]
     Active Substance: TREMELIMUMAB
     Dosage: 75 MG, EVERY 3 WEEKS
     Route: 042
     Dates: start: 20220217, end: 20220217
  15. TREMELIMUMAB [Concomitant]
     Active Substance: TREMELIMUMAB
     Dosage: 75 MG, EVERY 3 WEEKS
     Route: 042
     Dates: start: 20220408, end: 20220408
  16. DURVALUMAB [Concomitant]
     Active Substance: DURVALUMAB
     Indication: Non-small cell lung cancer
     Dosage: 1500 MG, EVERY THREE WEEKS
     Route: 042
     Dates: start: 20211214, end: 20211214
  17. DURVALUMAB [Concomitant]
     Active Substance: DURVALUMAB
     Dosage: 1500 MG, EVERY THREE WEEKS
     Route: 042
     Dates: start: 20220105, end: 20220105
  18. DURVALUMAB [Concomitant]
     Active Substance: DURVALUMAB
     Dosage: 1500 MG, EVERY THREE WEEKS
     Route: 042
     Dates: start: 20220126, end: 20220126
  19. DURVALUMAB [Concomitant]
     Active Substance: DURVALUMAB
     Dosage: 1500 MG, EVERY THREE WEEKS
     Route: 042
     Dates: start: 20220217, end: 20220217
  20. DURVALUMAB [Concomitant]
     Active Substance: DURVALUMAB
     Dosage: 1500 MG, EVERY FOUR WEEKS
     Route: 042
     Dates: start: 20220310, end: 20220310
  21. DURVALUMAB [Concomitant]
     Active Substance: DURVALUMAB
     Dosage: 1500 MG, EVERY FOUR WEEKS
     Route: 042
     Dates: start: 20220408, end: 20220408

REACTIONS (1)
  - Myelosuppression [Recovered/Resolved]

NARRATIVE: CASE EVENT DATE: 20220415
